FAERS Safety Report 11779419 (Version 1)
Quarter: 2015Q4

REPORT INFORMATION
  Report Type: Spontaneous
  Country: US (occurrence: US)
  Receive Date: 20151125
  Receipt Date: 20151125
  Transmission Date: 20160304
  Serious: No
  Sender: FDA-Public Use
  Company Number: US-ELI_LILLY_AND_COMPANY-US201511008035

PATIENT
  Age: 72 Year
  Sex: Female

DRUGS (2)
  1. LANTUS [Concomitant]
     Active Substance: INSULIN GLARGINE
  2. HUMALOG [Suspect]
     Active Substance: INSULIN LISPRO
     Indication: PRODUCT USED FOR UNKNOWN INDICATION
     Dosage: 30 U, UNKNOWN
     Route: 065

REACTIONS (5)
  - Back disorder [Unknown]
  - Drug dose omission [Recovered/Resolved]
  - Musculoskeletal discomfort [Unknown]
  - Malaise [Unknown]
  - Limb discomfort [Unknown]

NARRATIVE: CASE EVENT DATE: 20151123
